FAERS Safety Report 26002679 (Version 6)
Quarter: 2025Q4

REPORT INFORMATION
  Report Type: Report from Study
  Country: EU (occurrence: EU)
  Receive Date: 20251106
  Receipt Date: 20251201
  Transmission Date: 20260117
  Serious: Yes (Hospitalization)
  Sender: ABBVIE
  Company Number: EU-ABBVIE-6529435

PATIENT
  Age: 71 Year
  Sex: Male

DRUGS (15)
  1. CARBIDOPA\LEVODOPA [Suspect]
     Active Substance: CARBIDOPA\LEVODOPA
     Indication: Parkinson^s disease
     Dosage: MD 5.0ML, CRT 4.2ML/H, CRN 3.1ML/H, ED 1.5ML.?FIRST ADMIN DATE: 2025,
     Route: 050
  2. CARBIDOPA\LEVODOPA [Suspect]
     Active Substance: CARBIDOPA\LEVODOPA
     Dosage: MD 5.0ML CRT 3.7ML/H, CRN 2.6ML/H, ED 1.5ML?FIRST ADMIN DATE: 2025, LAST ADMIN DATE:2025
     Route: 050
  3. CARBIDOPA\LEVODOPA [Suspect]
     Active Substance: CARBIDOPA\LEVODOPA
     Dosage: MD 5.0ML CRT 4.0ML/H, CRN 2.9ML/H, ED 1.5ML.?FIRST ADMIN DATE: 2025, LAST ADMIN DATE:2025
     Route: 050
  4. CARBIDOPA\LEVODOPA [Suspect]
     Active Substance: CARBIDOPA\LEVODOPA
     Dosage: MD 5.0 ML, CRT 3.6 ML/H, CRN 2.8 ML/H, ED 1.5 ML.
     Route: 050
  5. CARBIDOPA\LEVODOPA [Suspect]
     Active Substance: CARBIDOPA\LEVODOPA
     Dosage: MD 5.0ML, CRT 4.2ML/H, CRN 3.1ML/H, ED 1.5ML
     Route: 050
  6. CARBIDOPA\LEVODOPA [Suspect]
     Active Substance: CARBIDOPA\LEVODOPA
     Dosage: MD 5.0ML,CRT 4.2ML/H, CRN 3.2ML/H, ED 1.5,
     Route: 050
     Dates: start: 20250925
  7. MELATONIN [Concomitant]
     Active Substance: MELATONIN
     Indication: Product used for unknown indication
     Dosage: FORM STRENGTH: 2 MG
  8. CYANOCOBALAMIN [Concomitant]
     Active Substance: CYANOCOBALAMIN
     Indication: Product used for unknown indication
  9. CHOLECALCIFEROL [Concomitant]
     Active Substance: CHOLECALCIFEROL
     Indication: Product used for unknown indication
     Dosage: FORM STRENGTH-1000I.E
  10. ESOMEPRAZOLE [Concomitant]
     Active Substance: ESOMEPRAZOLE
     Indication: Product used for unknown indication
     Dosage: FORM STRENGTH-40MG
     Dates: start: 20251023
  11. Eisen [Concomitant]
     Indication: Product used for unknown indication
     Dosage: 30MG TROPFEN
  12. QUETIAPINE [Concomitant]
     Active Substance: QUETIAPINE
     Indication: Product used for unknown indication
     Dosage: FORM STRENGTH 25 MG
  13. TORSEMIDE [Concomitant]
     Active Substance: TORSEMIDE
     Indication: Product used for unknown indication
     Dosage: FORM STRENGTH-5MG
  14. FOLIC ACID [Concomitant]
     Active Substance: FOLIC ACID
     Indication: Product used for unknown indication
     Dosage: FORM STRENGTH 5 MG
  15. IRON [Concomitant]
     Active Substance: IRON
     Indication: Product used for unknown indication
     Dosage: FORM STRENGTH-30MG DROPS

REACTIONS (5)
  - Viral infection [Recovering/Resolving]
  - Device dislocation [Recovered/Resolved]
  - On and off phenomenon [Not Recovered/Not Resolved]
  - Inflammatory marker increased [Recovering/Resolving]
  - Device dislocation [Recovered/Resolved]

NARRATIVE: CASE EVENT DATE: 20250101
